FAERS Safety Report 5078036-X (Version None)
Quarter: 2006Q3

REPORT INFORMATION
  Report Type: 
  Country: None (occurrence: None)
  Receive Date: 20060720
  Receipt Date: 20060426
  Transmission Date: 20061208
  Serious: Yes (Hospitalization, Disabling, Other)
  Sender: FDA-Public Use
  Company Number: 2005132322

PATIENT
  Age: 59 Year
  Sex: Male
  Weight: 125.6464 kg

DRUGS (2)
  1. CELEBREX [Suspect]
     Indication: ARTHRALGIA
     Dosage: UNKNOWN (1 IN 1 D), UNKNOWN
     Dates: start: 20030201, end: 20041214
  2. CELEBREX [Suspect]
     Indication: MUSCULOSKELETAL PAIN
     Dosage: UNKNOWN (1 IN 1 D), UNKNOWN
     Dates: start: 20030201, end: 20041214

REACTIONS (1)
  - CEREBROVASCULAR ACCIDENT [None]
